FAERS Safety Report 11104137 (Version 1)
Quarter: 2015Q2

REPORT INFORMATION
  Report Type: Spontaneous
  Country: US (occurrence: None)
  Receive Date: 20150508
  Receipt Date: 20150508
  Transmission Date: 20150821
  Serious: No
  Sender: FDA-Public Use
  Company Number: None

PATIENT
  Age: 17 Year
  Sex: Female
  Weight: 46.27 kg

DRUGS (1)
  1. ZICAM COLD REMEDY RAPIDMELTS WITH ECHINACEA [Suspect]
     Active Substance: ECHINACEA ANGUSTIFOLIA\ZINC ACETATE ANHYDROUS\ZINC GLUCONATE
     Indication: OROPHARYNGEAL PAIN
     Dates: start: 20150424, end: 20150426

REACTIONS (3)
  - Ageusia [None]
  - Sinus disorder [None]
  - Anosmia [None]

NARRATIVE: CASE EVENT DATE: 20150430
